FAERS Safety Report 18684448 (Version 4)
Quarter: 2022Q1

REPORT INFORMATION
  Report Type: Spontaneous
  Country: US (occurrence: US)
  Receive Date: 20201230
  Receipt Date: 20220110
  Transmission Date: 20220423
  Serious: No
  Sender: FDA-Public Use
  Company Number: US-PFIZER INC-2020516462

PATIENT
  Age: 72 Year
  Sex: Female
  Weight: 86.18 kg

DRUGS (2)
  1. XELJANZ XR [Suspect]
     Active Substance: TOFACITINIB CITRATE
     Indication: Rheumatoid arthritis
     Dosage: 11 MG, DAILY
     Route: 048
  2. TYLENOL [Concomitant]
     Active Substance: ACETAMINOPHEN
     Indication: Analgesic therapy
     Dosage: 500 MG

REACTIONS (6)
  - Hypoacusis [Unknown]
  - Body height decreased [Unknown]
  - Weight increased [Unknown]
  - Tremor [Unknown]
  - Sensitivity to weather change [Unknown]
  - Product dose omission issue [Unknown]
